FAERS Safety Report 23459376 (Version 2)
Quarter: 2024Q1

REPORT INFORMATION
  Report Type: Spontaneous
  Country: DE (occurrence: DE)
  Receive Date: 20240131
  Receipt Date: 20240206
  Transmission Date: 20240410
  Serious: Yes (Death, Other)
  Sender: FDA-Public Use
  Company Number: DE-GERMAN-LIT/DEU/24/0000576

PATIENT
  Age: 69 Year
  Sex: Male

DRUGS (14)
  1. OXALIPLATIN [Suspect]
     Active Substance: OXALIPLATIN
     Indication: Cholangiocarcinoma
     Dosage: 100 MILLIGRAM/SQ. METER (EVERY 2 WEEKS AS A PART OF FOLFOX REGIMEN)
     Route: 065
     Dates: start: 201907, end: 202002
  2. IRINOTECAN [Suspect]
     Active Substance: IRINOTECAN
     Indication: Cholangiocarcinoma
     Dosage: 180 MILLIGRAM/SQ. METER (EVERY 2 WEEKS AS A PART OF FOLFIRI REGIMEN)
     Route: 065
     Dates: start: 202002
  3. GEMCITABINE [Suspect]
     Active Substance: GEMCITABINE
     Indication: Cholangiocarcinoma
     Dosage: 1000 MILLIGRAM/SQ. METER, ON DAY?1 AND 8
     Route: 065
     Dates: start: 201711, end: 201907
  4. PEMIGATINIB [Suspect]
     Active Substance: PEMIGATINIB
     Indication: Cholangiocarcinoma
     Dosage: 9 MILLIGRAM, ONCE A DAY (FOR 2?WEEKS, FOLLOWED BY 1 WEEK PAUSE)
     Route: 065
  5. PEMIGATINIB [Suspect]
     Active Substance: PEMIGATINIB
     Dosage: 13.5 MILLIGRAM, ONCE A DAY
     Route: 065
     Dates: start: 202005
  6. AZACITIDINE [Suspect]
     Active Substance: AZACITIDINE
     Indication: Acute myeloid leukaemia
     Dosage: 75 MILLIGRAM/SQ. METER
     Route: 065
     Dates: start: 202109
  7. FLUOROURACIL [Suspect]
     Active Substance: FLUOROURACIL
     Indication: Cholangiocarcinoma
     Dosage: 400 MILLIGRAM/SQ. METER
     Route: 065
     Dates: start: 201907, end: 202002
  8. FLUOROURACIL [Suspect]
     Active Substance: FLUOROURACIL
     Dosage: 3000 MILLIGRAM/SQ. METER (3000?MG/M2 AS 48H INFUSION EVERY 2?WEEKS AS A PART OF FOLFOX REGIMEN)
     Route: 065
     Dates: start: 201907, end: 202002
  9. FLUOROURACIL [Suspect]
     Active Substance: FLUOROURACIL
     Dosage: 400 MILLIGRAM/SQ. METER (400?MG/M2 AS BOLUS EVERY 2?WEEKS AS A PART OF FOLFOX REGIMEN)
     Route: 065
     Dates: start: 201907, end: 202002
  10. FLUOROURACIL [Suspect]
     Active Substance: FLUOROURACIL
     Dosage: 400 MILLIGRAM/SQ. METER
     Route: 065
     Dates: start: 202002
  11. FLUOROURACIL [Suspect]
     Active Substance: FLUOROURACIL
     Dosage: 2400 MILLIGRAM/SQ. METER (2400 MILLIGRAM/SQ. METER (2400?MG/M2 AS 48H INFUSION EVERY 2?WEEKS AS A PA
     Route: 065
     Dates: start: 202002
  12. FOLIC ACID [Suspect]
     Active Substance: FOLIC ACID
     Indication: Product used for unknown indication
     Dosage: 400 MILLIGRAM/SQ. METER (EVERY 2?WEEKS AS A PART OF FOLFOX REGIMEN)
     Route: 065
     Dates: start: 201907, end: 202002
  13. FOLIC ACID [Suspect]
     Active Substance: FOLIC ACID
     Dosage: 400 MILLIGRAM/SQ. METER (EVERY 2?WEEKS AS A PART OF FOLFIRI REGIMEN)
     Route: 065
     Dates: start: 202002
  14. CISPLATIN [Suspect]
     Active Substance: CISPLATIN
     Indication: Cholangiocarcinoma
     Dosage: 25 MILLIGRAM/SQ. METER, ON DAY 1 AND 8
     Route: 065
     Dates: start: 201711, end: 201907

REACTIONS (6)
  - Pneumonia [Fatal]
  - Acute myeloid leukaemia [Fatal]
  - Disease progression [Fatal]
  - Drug ineffective [Fatal]
  - Off label use [Fatal]
  - Treatment failure [Unknown]

NARRATIVE: CASE EVENT DATE: 20210101
